FAERS Safety Report 10041325 (Version 1)
Quarter: 2014Q1

REPORT INFORMATION
  Report Type: Spontaneous
  Country: IN (occurrence: None)
  Receive Date: 20140325
  Receipt Date: 20140325
  Transmission Date: 20141002
  Serious: Yes (Other)
  Sender: FDA-Public Use
  Company Number: 2014P1002196

PATIENT
  Age: 50 Year
  Sex: Male

DRUGS (3)
  1. METRONIDAZOLE [Suspect]
     Indication: LICHEN PLANUS
     Dosage: BIDX2
     Route: 048
  2. MULTIVITAMIN [Concomitant]
  3. TRIAMCINOLONE [Concomitant]

REACTIONS (15)
  - Burning sensation [None]
  - Pruritus generalised [None]
  - Dizziness [None]
  - Confusional state [None]
  - Convulsion [None]
  - Loss of consciousness [None]
  - Chills [None]
  - Palpitations [None]
  - Pyrexia [None]
  - Dysphagia [None]
  - Micturition urgency [None]
  - Urethral discharge [None]
  - Blister [None]
  - Hyperglycaemia [None]
  - Stevens-Johnson syndrome [None]
